APPROVED DRUG PRODUCT: TOLVAPTAN
Active Ingredient: TOLVAPTAN
Strength: 30MG
Dosage Form/Route: TABLET;ORAL
Application: A205646 | Product #001 | TE Code: AB1
Applicant: HETERO LABS LTD UNIT V
Approved: Jul 16, 2021 | RLD: No | RS: No | Type: RX